FAERS Safety Report 15292012 (Version 2)
Quarter: 2018Q3

REPORT INFORMATION
  Report Type: Report from Study
  Country: None (occurrence: FI)
  Receive Date: 20180818
  Receipt Date: 20180828
  Transmission Date: 20181010
  Serious: Yes (Hospitalization)
  Sender: FDA-Public Use
  Company Number: FI-ABBVIE-18S-055-2450689-00

PATIENT
  Age: 76 Year
  Sex: Female

DRUGS (1)
  1. DUODOPA [Suspect]
     Active Substance: CARBIDOPA\LEVODOPA
     Indication: PARKINSON^S DISEASE
     Dosage: MD: DID NOT REMEMBER; CD 5.5 ML/H, NO EDS; 24 H TREATMENT
     Route: 050

REACTIONS (6)
  - Device damage [Recovered/Resolved]
  - Hyperhidrosis [Recovered/Resolved]
  - Drug dose omission [Unknown]
  - Product leakage [Recovered/Resolved]
  - Dyspnoea [Recovered/Resolved]
  - Dyspnoea [Recovered/Resolved]

NARRATIVE: CASE EVENT DATE: 2018
